FAERS Safety Report 4879136-7 (Version None)
Quarter: 2006Q1

REPORT INFORMATION
  Report Type: 
  Country: None (occurrence: None)
  Receive Date: 20060112
  Receipt Date: 20040123
  Transmission Date: 20060701
  Serious: Yes (Life-Threatening)
  Sender: FDA-Public Use
  Company Number: IT-ROCHE-356885

PATIENT
  Age: 60 Year
  Sex: Male

DRUGS (11)
  1. ROCEPHIN [Suspect]
     Indication: URINARY TRACT INFECTION
     Dosage: DOASGE REGIMEN REPORTED AS ONCE.
     Route: 042
     Dates: start: 20030221, end: 20030225
  2. SELEPARINA [Concomitant]
  3. LORAZEPAM [Concomitant]
  4. TICLID [Concomitant]
  5. LASIX [Concomitant]
  6. LANOXIN [Concomitant]
  7. ENAPREN [Concomitant]
  8. DILATREND [Concomitant]
  9. ANTRA [Concomitant]
  10. SEROPRAM [Concomitant]
  11. KANRENOL [Concomitant]

REACTIONS (3)
  - BLOOD BILIRUBIN UNCONJUGATED INCREASED [None]
  - HAEMOLYSIS [None]
  - RENAL FAILURE ACUTE [None]
